FAERS Safety Report 15600550 (Version 1)
Quarter: 2018Q4

REPORT INFORMATION
  Report Type: Spontaneous
  Country: US (occurrence: US)
  Receive Date: 20181109
  Receipt Date: 20181109
  Transmission Date: 20190205
  Serious: Yes (Other)
  Sender: FDA-Public Use
  Company Number: US-ADIENNEP-2018AD000538

PATIENT
  Age: 15 Year
  Sex: Male

DRUGS (3)
  1. CYCLOPHOSPHAMIDE. [Suspect]
     Active Substance: CYCLOPHOSPHAMIDE
     Indication: STEM CELL TRANSPLANT
  2. THIOTEPA. [Suspect]
     Active Substance: THIOTEPA
     Indication: STEM CELL TRANSPLANT
  3. ANTITHYMOCYTE IMMUNOGLOBULIN [Suspect]
     Active Substance: THYMOCYTE IMMUNE GLOBULIN NOS
     Indication: STEM CELL TRANSPLANT

REACTIONS (11)
  - Myelodysplastic syndrome [Unknown]
  - Acute graft versus host disease in liver [Unknown]
  - Chronic graft versus host disease in liver [Unknown]
  - Chronic graft versus host disease in skin [Unknown]
  - Acute graft versus host disease in skin [Unknown]
  - Renal cell carcinoma [Unknown]
  - Lung disorder [Unknown]
  - Lip squamous cell carcinoma [Unknown]
  - Polyomavirus-associated nephropathy [Unknown]
  - Chronic graft versus host disease in intestine [Unknown]
  - Acute graft versus host disease in intestine [Unknown]
